FAERS Safety Report 8091343-1 (Version None)
Quarter: 2012Q1

REPORT INFORMATION
  Report Type: 
  Country: None (occurrence: None)
  Receive Date: 20120131
  Receipt Date: 20120118
  Transmission Date: 20120608
  Serious: Yes (Other)
  Sender: FDA-Public Use
  Company Number: US-ELI_LILLY_AND_COMPANY-US201112004606

PATIENT
  Age: 52 Year
  Sex: Female
  Weight: 63.492 kg

DRUGS (5)
  1. CYMBALTA [Suspect]
     Indication: DEPRESSION
     Dosage: 30 MG, QD
     Route: 048
  2. CYMBALTA [Suspect]
     Dosage: 60 MG, QD
     Route: 048
  3. GOLD BOND [Concomitant]
  4. CYMBALTA [Suspect]
     Dosage: 60 MG, QD
     Route: 048
  5. SINGULAIR [Concomitant]

REACTIONS (3)
  - SWOLLEN TONGUE [None]
  - PHARYNGEAL OEDEMA [None]
  - RASH GENERALISED [None]
